FAERS Safety Report 13935967 (Version 1)
Quarter: 2017Q3

REPORT INFORMATION
  Report Type: Spontaneous
  Country: CA (occurrence: CA)
  Receive Date: 20170905
  Receipt Date: 20170905
  Transmission Date: 20171127
  Serious: Yes (Hospitalization, Other)
  Sender: FDA-Public Use
  Company Number: CA-PFIZER INC-2013202309

PATIENT
  Age: 68 Year
  Sex: Male

DRUGS (8)
  1. NOVO-GLICLAZIDE [Concomitant]
     Dosage: 80 MG, 1X/DAY
     Route: 048
  2. VASOTEC [Concomitant]
     Active Substance: ENALAPRIL MALEATE
     Dosage: 10 MG, 1X/DAY
     Route: 048
  3. CELEBREX [Suspect]
     Active Substance: CELECOXIB
     Dosage: 200 MG, 1X/DAY
     Route: 048
     Dates: start: 20020529, end: 200410
  4. XALATAN [Concomitant]
     Active Substance: LATANOPROST
     Dosage: 1 DF, 1X/DAY
     Route: 047
  5. NOVO-METFORMIN [Concomitant]
     Dosage: 500 MG, 2X/DAY
     Route: 048
  6. SERC [Concomitant]
     Active Substance: BETAHISTINE HYDROCHLORIDE
     Dosage: 8 MG, 1X/DAY
     Route: 048
  7. BEZALIP SR [Concomitant]
     Dosage: 400 MG, 1X/DAY
     Route: 048
  8. APO-AMPI [Concomitant]
     Dosage: 500 MG, UNK

REACTIONS (4)
  - Ischaemic stroke [Unknown]
  - Ataxia [Unknown]
  - Visual acuity reduced [Unknown]
  - Headache [Unknown]

NARRATIVE: CASE EVENT DATE: 20040807
